FAERS Safety Report 11966559 (Version 2)
Quarter: 2017Q1

REPORT INFORMATION
  Report Type: Report from Study
  Country: GB (occurrence: GB)
  Receive Date: 20160127
  Receipt Date: 20170120
  Transmission Date: 20170428
  Serious: Yes (Hospitalization)
  Sender: FDA-Public Use
  Company Number: GB-BAYER-2016-007990

PATIENT
  Age: 68 Year
  Sex: Male

DRUGS (2)
  1. ASPIRIN. [Suspect]
     Active Substance: ASPIRIN
     Indication: NEOPLASM PROPHYLAXIS
     Dosage: UNK
     Dates: start: 20150811
  2. ASPIRIN. [Suspect]
     Active Substance: ASPIRIN
     Indication: NEOPLASM PROPHYLAXIS
     Dosage: LAST DOSE PRIOR TO EVENT ONSET
     Dates: start: 20160112, end: 20160112

REACTIONS (3)
  - Hypoxia [None]
  - Viral infection [None]
  - Asthma [None]

NARRATIVE: CASE EVENT DATE: 20160110
